FAERS Safety Report 4907870-9 (Version None)
Quarter: 2006Q1

REPORT INFORMATION
  Report Type: 
  Country: None (occurrence: None)
  Receive Date: 20060210
  Receipt Date: 20051213
  Transmission Date: 20060701
  Serious: Yes (Death)
  Sender: FDA-Public Use
  Company Number: JP-BRISTOL-MYERS SQUIBB COMPANY-13224027

PATIENT
  Age: 73 Year
  Sex: Female

DRUGS (10)
  1. SINEMET [Suspect]
     Indication: PARKINSON'S DISEASE
     Dosage: 100MG TID 26NOV01 - 28NOV01; 200MG TID 29NOV01 - 30NOV01; 300MG QD 01DEC01 - 06DEC01
     Route: 048
     Dates: start: 20011126, end: 20011206
  2. SINEMET [Suspect]
     Route: 048
     Dates: start: 20011129, end: 20011206
  3. ELAVIL [Suspect]
     Indication: DEPRESSION
     Route: 048
     Dates: start: 20011206, end: 20011210
  4. ALOSENN [Concomitant]
     Dates: start: 20011121
  5. BIOFERMIN [Concomitant]
     Dates: start: 20011121
  6. KETAS [Concomitant]
     Dates: start: 20011121
  7. NAUZELIN [Concomitant]
     Dates: start: 20011126
  8. NEUZYM [Concomitant]
     Dates: start: 20011121
  9. SYMMETREL [Concomitant]
     Dates: start: 20011121
  10. TOFRANIL [Concomitant]
     Dates: start: 20011214

REACTIONS (4)
  - DRUG INEFFECTIVE [None]
  - HEPATIC FUNCTION ABNORMAL [None]
  - NAUSEA [None]
  - SUDDEN DEATH [None]
